FAERS Safety Report 12415622 (Version 3)
Quarter: 2016Q3

REPORT INFORMATION
  Report Type: Spontaneous
  Country: US (occurrence: US)
  Receive Date: 20160530
  Receipt Date: 20160815
  Transmission Date: 20161109
  Serious: No
  Sender: FDA-Public Use
  Company Number: US-PFIZER INC-2016278115

PATIENT
  Age: 72 Year
  Sex: Female

DRUGS (6)
  1. XELJANZ [Suspect]
     Active Substance: TOFACITINIB CITRATE
     Dosage: 5 MG, 2X/DAY
  2. METFORMIN [Interacting]
     Active Substance: METFORMIN HYDROCHLORIDE
     Dosage: 500 MG, 2X/DAY
  3. OMEPRAZOLE. [Interacting]
     Active Substance: OMEPRAZOLE
     Dosage: 40 MG, 1X/DAY
  4. LEVEMIR [Interacting]
     Active Substance: INSULIN DETEMIR
     Dosage: 2X/DAY
  5. METOPROLOL TARTRATE. [Interacting]
     Active Substance: METOPROLOL TARTRATE
     Dosage: 50 MG, 2X/DAY
  6. JANUVIA [Interacting]
     Active Substance: SITAGLIPTIN PHOSPHATE
     Dosage: 100 MG, 1X/DAY

REACTIONS (3)
  - Intentional product misuse [Unknown]
  - Hallucination [Recovered/Resolved]
  - Drug interaction [Recovered/Resolved]
